APPROVED DRUG PRODUCT: OLANZAPINE
Active Ingredient: OLANZAPINE
Strength: 10MG
Dosage Form/Route: TABLET;ORAL
Application: A090798 | Product #004 | TE Code: AB
Applicant: APOTEX INC
Approved: Apr 23, 2012 | RLD: No | RS: No | Type: RX